FAERS Safety Report 22135483 (Version 2)
Quarter: 2023Q1

REPORT INFORMATION
  Report Type: Spontaneous
  Country: CN (occurrence: CN)
  Receive Date: 20230324
  Receipt Date: 20230330
  Transmission Date: 20230418
  Serious: Yes (Other)
  Sender: FDA-Public Use
  Company Number: CN-AstraZeneca-2023A058698

PATIENT
  Age: 90 Year
  Sex: Female
  Weight: 50 kg

DRUGS (2)
  1. METOPROLOL SUCCINATE [Suspect]
     Active Substance: METOPROLOL SUCCINATE
     Indication: Cardiac failure
     Route: 048
     Dates: start: 20230223, end: 20230227
  2. METOPROLOL SUCCINATE [Suspect]
     Active Substance: METOPROLOL SUCCINATE
     Indication: Arrhythmia

REACTIONS (2)
  - Electrocardiogram RR interval prolonged [Recovering/Resolving]
  - Bradyarrhythmia [Recovering/Resolving]

NARRATIVE: CASE EVENT DATE: 20230228
